FAERS Safety Report 5121523-6 (Version None)
Quarter: 2006Q4

REPORT INFORMATION
  Report Type: 
  Country: None (occurrence: None)
  Receive Date: 20061003
  Receipt Date: 20060921
  Transmission Date: 20070319
  Serious: Yes (Death, Hospitalization)
  Sender: FDA-Public Use
  Company Number: 2006085755

PATIENT
  Age: 72 Year
  Sex: Male

DRUGS (17)
  1. ZYVOX [Suspect]
     Indication: PNEUMONIA
     Dosage: 1200 MG (2 IN 1 D), INTRAVENOUS
     Route: 042
     Dates: start: 20060623, end: 20060709
  2. ZYVOX [Suspect]
     Indication: PYOTHORAX
     Dosage: 1200 MG (2 IN 1 D), INTRAVENOUS
     Route: 042
     Dates: start: 20060623, end: 20060709
  3. ZYVOX [Suspect]
     Indication: STAPHYLOCOCCAL INFECTION
     Dosage: 1200 MG (2 IN 1 D), INTRAVENOUS
     Route: 042
     Dates: start: 20060623, end: 20060709
  4. DOPS (DROXIDOPA) [Suspect]
     Indication: ORTHOSTATIC HYPOTENSION
     Dosage: 200 MG (2 IN 1 D), ORAL
     Route: 048
     Dates: start: 20060617, end: 20060713
  5. VANCOMYCIN [Concomitant]
  6. TEICOPLANIN (TEICOPLANIN) [Concomitant]
  7. ADONA (CARBAZOCHROME SODIUM SULFONATE) [Concomitant]
  8. CLARITHROMYCIN [Concomitant]
  9. CLEANAL (FUDOSTEINE) [Concomitant]
  10. DEXTROMETHORPHAN HYDROBROMIDE [Concomitant]
  11. MAGNESIUM OXIDE (MAGNESIUM OXIDE) [Concomitant]
  12. MUCOSOLVAN (AMBROXOL HYDROCHLORIDE) [Concomitant]
  13. PARLODEL [Concomitant]
  14. MENESIT (CARBIDOPA, LEVODOPA) [Concomitant]
  15. SYMMETREL [Concomitant]
  16. ARTANE [Concomitant]
  17. SELEGILINE HYDROCHLORIDE (SELEGILINE HYDROCHLORIDE) [Concomitant]

REACTIONS (8)
  - AGGRESSION [None]
  - DELIRIUM [None]
  - DRUG INEFFECTIVE [None]
  - GENERAL PHYSICAL HEALTH DETERIORATION [None]
  - HALLUCINATION [None]
  - PLATELET COUNT DECREASED [None]
  - PNEUMONIA ASPIRATION [None]
  - RENAL IMPAIRMENT [None]
